FAERS Safety Report 23832139 (Version 1)
Quarter: 2024Q2

REPORT INFORMATION
  Report Type: Spontaneous
  Country: CN (occurrence: CN)
  Receive Date: 20240508
  Receipt Date: 20240508
  Transmission Date: 20240716
  Serious: Yes (Other)
  Sender: FDA-Public Use
  Company Number: CN-Merck Healthcare KGaA-2024023182

PATIENT
  Age: 77 Year
  Sex: Female
  Weight: 42 kg

DRUGS (6)
  1. ERBITUX [Suspect]
     Active Substance: CETUXIMAB
     Indication: Colon cancer
     Dosage: 120 ML, OTHER (120 ML IVGTT D2. INJECTION)
     Route: 041
     Dates: start: 20231116, end: 20231116
  2. ERBITUX [Suspect]
     Active Substance: CETUXIMAB
     Dosage: 120 ML, OTHER (120 ML IVGTT D2. INJECTION)
     Route: 041
  3. ADEBRELIMAB [Suspect]
     Active Substance: ADEBRELIMAB
     Indication: Colon cancer
     Dosage: 900 MG, DAILY
     Route: 041
     Dates: start: 20231115, end: 20231115
  4. ADEBRELIMAB [Suspect]
     Active Substance: ADEBRELIMAB
     Dosage: 900 MG, DAILY
     Route: 041
  5. SODIUM CHLORIDE [Concomitant]
     Active Substance: SODIUM CHLORIDE
     Indication: Medication dilution
     Dosage: 250 ML, DAILY
     Route: 041
     Dates: start: 20231115, end: 20231115
  6. SODIUM CHLORIDE [Concomitant]
     Active Substance: SODIUM CHLORIDE
     Dosage: 380 ML, DAILY
     Route: 041
     Dates: start: 20231116, end: 20231116

REACTIONS (1)
  - Cytopenia [Recovering/Resolving]

NARRATIVE: CASE EVENT DATE: 20231206
